FAERS Safety Report 25777694 (Version 1)
Quarter: 2025Q3

REPORT INFORMATION
  Report Type: Spontaneous
  Country: US (occurrence: US)
  Receive Date: 20250909
  Receipt Date: 20250909
  Transmission Date: 20251020
  Serious: No
  Sender: Kenvue
  Company Number: US-KENVUE-20250901268

PATIENT
  Sex: Female

DRUGS (3)
  1. TYLENOL [Suspect]
     Active Substance: ACETAMINOPHEN
     Indication: Influenza
     Route: 065
  2. IBUPROFEN [Suspect]
     Active Substance: IBUPROFEN
     Indication: Influenza
     Route: 065
  3. ACETAMINOPHEN\GUAIFENESIN\PHENYLEPHRINE [Concomitant]
     Active Substance: ACETAMINOPHEN\GUAIFENESIN\PHENYLEPHRINE
     Indication: Influenza
     Route: 065

REACTIONS (2)
  - Exposure during pregnancy [Unknown]
  - Product administered to patient of inappropriate age [Unknown]
